FAERS Safety Report 6317992-6 (Version None)
Quarter: 2009Q3

REPORT INFORMATION
  Report Type: 
  Country: None (occurrence: None)
  Receive Date: 20090821
  Receipt Date: 20090813
  Transmission Date: 20100115
  Serious: Yes (Hospitalization)
  Sender: FDA-Public Use
  Company Number: FR-PFIZER INC-2009254276

PATIENT
  Age: 73 Year

DRUGS (4)
  1. AMLOR [Suspect]
  2. TENORMIN [Suspect]
  3. AMIODARONE [Suspect]
  4. NEORAL [Concomitant]
     Dosage: UNK
     Dates: start: 20080228

REACTIONS (6)
  - DIZZINESS [None]
  - FALL [None]
  - ISCHAEMIC CEREBRAL INFARCTION [None]
  - ORTHOSTATIC HYPOTENSION [None]
  - URINARY TRACT INFECTION [None]
  - WRIST FRACTURE [None]
